FAERS Safety Report 6218568-1 (Version None)
Quarter: 2009Q2

REPORT INFORMATION
  Report Type: 
  Country: None (occurrence: None)
  Receive Date: 20090608
  Receipt Date: 20090603
  Transmission Date: 20091009
  Serious: Yes (Life-Threatening)
  Sender: FDA-Public Use
  Company Number: JP-ASTRAZENECA-2009AP03292

PATIENT
  Age: 23882 Day
  Sex: Male

DRUGS (3)
  1. MEROPEN [Suspect]
     Indication: PNEUMONIA
     Route: 042
     Dates: start: 20090505, end: 20090507
  2. FLUMARIN [Concomitant]
     Indication: PNEUMONIA
     Dates: start: 20090501, end: 20090504
  3. UNASYN [Concomitant]
     Indication: PNEUMONIA
     Dates: start: 20090415, end: 20090430

REACTIONS (1)
  - PYREXIA [None]
